FAERS Safety Report 10155352 (Version 2)
Quarter: 2014Q2

REPORT INFORMATION
  Report Type: Spontaneous
  Country: US (occurrence: US)
  Receive Date: 20140506
  Receipt Date: 20140506
  Transmission Date: 20141212
  Serious: Yes (Other)
  Sender: FDA-Public Use
  Company Number: US-SHIRE-US201400895

PATIENT
  Age: 14 Year
  Sex: Male
  Weight: 61 kg

DRUGS (3)
  1. INTUNIV [Suspect]
     Indication: PRODUCT USED FOR UNKNOWN INDICATION
     Dosage: 1 MG, 1X/DAY:QD (MORNING)
     Route: 048
     Dates: start: 20131008
  2. INTUNIV [Suspect]
     Dosage: 2 MG, 1X/DAY:QD (EVENING)
     Route: 048
     Dates: start: 20131119
  3. FOCALIN [Suspect]
     Indication: PRODUCT USED FOR UNKNOWN INDICATION
     Dosage: 50 MG, UNKNOWN
     Route: 065

REACTIONS (2)
  - Polycythaemia [Recovering/Resolving]
  - Inappropriate schedule of drug administration [Not Recovered/Not Resolved]
